FAERS Safety Report 7534176-4 (Version None)
Quarter: 2011Q2

REPORT INFORMATION
  Report Type: 
  Country: None (occurrence: None)
  Receive Date: 20110608
  Receipt Date: 20061122
  Transmission Date: 20111010
  Serious: Yes (Death, Other)
  Sender: FDA-Public Use
  Company Number: PHMT2006CA01773

PATIENT
  Sex: Female

DRUGS (2)
  1. CHEMOTHERAPEUTICS,OTHER [Concomitant]
  2. CLOZAPINE [Suspect]
     Route: 048
     Dates: start: 19950517

REACTIONS (2)
  - ANAL CANCER [None]
  - PULMONARY OEDEMA [None]
